FAERS Safety Report 14831680 (Version 1)
Quarter: 2018Q2

REPORT INFORMATION
  Report Type: Report from Study
  Country: US (occurrence: US)
  Receive Date: 20180501
  Receipt Date: 20180501
  Transmission Date: 20180711
  Serious: Yes (Death)
  Sender: FDA-Public Use
  Company Number: US-ROCHE-2112462

PATIENT
  Age: 34 Year
  Sex: Female
  Weight: 50.6 kg

DRUGS (31)
  1. CETUXIMAB. [Concomitant]
     Active Substance: CETUXIMAB
  2. ATIVAN [Concomitant]
     Active Substance: LORAZEPAM
     Route: 042
     Dates: end: 20171228
  3. ROBINUL [Concomitant]
     Active Substance: GLYCOPYRROLATE
     Route: 042
  4. FENTANYL. [Concomitant]
     Active Substance: FENTANYL
     Route: 065
  5. OXALIPLATIN. [Concomitant]
     Active Substance: OXALIPLATIN
  6. LIDOCAIN [Concomitant]
     Active Substance: LIDOCAINE
  7. ZOFRAN [Concomitant]
     Active Substance: ONDANSETRON HYDROCHLORIDE
     Route: 042
  8. LEVSIN [Concomitant]
     Active Substance: HYOSCYAMINE SULFATE
     Route: 060
  9. DILAUDID [Concomitant]
     Active Substance: HYDROMORPHONE HYDROCHLORIDE
     Route: 042
  10. NACL [Concomitant]
     Active Substance: SODIUM CHLORIDE
     Route: 042
     Dates: start: 20171225
  11. PEPCID (UNITED STATES) [Concomitant]
     Route: 065
     Dates: end: 20171229
  12. FLUOROURACIL. [Concomitant]
     Active Substance: FLUOROURACIL
  13. DABRAFENIB [Concomitant]
     Active Substance: DABRAFENIB
     Route: 048
     Dates: start: 20170910
  14. IRINOTECAN [Concomitant]
     Active Substance: IRINOTECAN
  15. TYLENOL [Concomitant]
     Active Substance: ACETAMINOPHEN
     Route: 048
     Dates: end: 20171221
  16. ATIVAN [Concomitant]
     Active Substance: LORAZEPAM
     Route: 065
  17. DURAGESIC [Concomitant]
     Active Substance: FENTANYL
     Route: 065
     Dates: end: 20171229
  18. POLYETHYLENE GLYCOL [Concomitant]
     Active Substance: POLYETHYLENE GLYCOLS
     Route: 048
  19. FOLINIC ACID [Concomitant]
     Active Substance: LEUCOVORIN
  20. TRAMETINIB [Concomitant]
     Active Substance: TRAMETINIB
     Route: 048
     Dates: start: 20170910
  21. BENADRYL [Concomitant]
     Active Substance: DIPHENHYDRAMINE HYDROCHLORIDE
     Route: 048
  22. COMPAZINE [Concomitant]
     Active Substance: PROCHLORPERAZINE MALEATE
     Route: 048
  23. AVASTIN [Suspect]
     Active Substance: BEVACIZUMAB
     Indication: PRODUCT USED FOR UNKNOWN INDICATION
     Dosage: SUBSEQUENT DOSE ON 25/JUL/2016
     Route: 065
     Dates: start: 20160711
  24. PANITUMUMAB [Concomitant]
     Active Substance: PANITUMUMAB
     Route: 042
     Dates: start: 20170910
  25. RELISTOR [Concomitant]
     Active Substance: METHYLNALTREXONE BROMIDE
     Route: 058
     Dates: end: 20171225
  26. HYOSCYAMIN [Concomitant]
  27. REGLAN [Concomitant]
     Active Substance: METOCLOPRAMIDE HYDROCHLORIDE
     Route: 042
     Dates: end: 20171223
  28. SENOKOT [Concomitant]
     Active Substance: SENNOSIDES
     Route: 048
  29. ZELBORAF [Suspect]
     Active Substance: VEMURAFENIB
     Indication: PRODUCT USED FOR UNKNOWN INDICATION
     Route: 048
     Dates: start: 20170608, end: 20170718
  30. DULCOLAX (BISACODYL) [Concomitant]
     Active Substance: BISACODYL
     Route: 054
     Dates: end: 20171223
  31. HALDOL [Concomitant]
     Active Substance: HALOPERIDOL
     Route: 065

REACTIONS (11)
  - Vitamin D deficiency [Unknown]
  - Leukopenia [Unknown]
  - Vomiting [Unknown]
  - Abdominal distension [Unknown]
  - Nausea [Unknown]
  - Haemoglobin decreased [Unknown]
  - Fatigue [Unknown]
  - Enteritis [Unknown]
  - Diarrhoea [Unknown]
  - Adenocarcinoma of colon [Fatal]
  - Confusional state [Unknown]

NARRATIVE: CASE EVENT DATE: 20171209
